FAERS Safety Report 9522229 (Version 1)
Quarter: 2013Q3

REPORT INFORMATION
  Report Type: Spontaneous
  Country: IT (occurrence: IT)
  Receive Date: 20130913
  Receipt Date: 20130913
  Transmission Date: 20140515
  Serious: Yes (Hospitalization, Other)
  Sender: FDA-Public Use
  Company Number: IT-009507513-1309ITA003817

PATIENT
  Age: 61 Year
  Sex: Male

DRUGS (4)
  1. VICTRELIS [Suspect]
     Indication: CHRONIC HEPATITIS C
     Dosage: 12 DOSE (UNIT) DAILY
     Route: 048
     Dates: start: 20130704, end: 20130815
  2. REBETOL [Suspect]
     Dosage: 600 MG, UNK
     Route: 048
     Dates: start: 20130607, end: 20130815
  3. PEGASYS [Suspect]
     Dosage: 1 DOSE (UNIT)
     Route: 058
     Dates: start: 20130607, end: 20130809
  4. EPOETIN BETA [Concomitant]
     Dosage: 1 DOSE (UNIT) STRENGTH: 20000 IU/1 ML INJECTION
     Route: 030
     Dates: start: 20130808, end: 20130815

REACTIONS (3)
  - Febrile bone marrow aplasia [Recovering/Resolving]
  - Pyrexia [Recovering/Resolving]
  - Rash [Recovering/Resolving]
